FAERS Safety Report 8728074 (Version 9)
Quarter: 2013Q3

REPORT INFORMATION
  Report Type: Spontaneous
  Country: US (occurrence: US)
  Receive Date: 20120817
  Receipt Date: 20130909
  Transmission Date: 20140515
  Serious: Yes (Death, Hospitalization, Other)
  Sender: FDA-Public Use
  Company Number: US-BIOGENIDEC-2012BI030372

PATIENT
  Age: 67 Year
  Sex: Female

DRUGS (2)
  1. TYSABRI [Suspect]
     Indication: MULTIPLE SCLEROSIS
     Route: 042
     Dates: start: 20061103, end: 20120706
  2. TYSABRI [Suspect]
     Indication: MULTIPLE SCLEROSIS
     Route: 042
     Dates: start: 20130109, end: 20130605

REACTIONS (9)
  - Death [Fatal]
  - Lung neoplasm [Fatal]
  - Squamous cell carcinoma of lung [Recovered/Resolved]
  - Intestinal fistula [Recovered/Resolved]
  - Neoplasm malignant [Unknown]
  - Peripheral nerve sheath tumour malignant [Recovered/Resolved]
  - Confusional state [Unknown]
  - Precancerous cells present [Unknown]
  - Weight decreased [Not Recovered/Not Resolved]
